FAERS Safety Report 10035796 (Version 2)
Quarter: 2014Q2

REPORT INFORMATION
  Report Type: Spontaneous
  Country: GR (occurrence: GR)
  Receive Date: 20140325
  Receipt Date: 20140407
  Transmission Date: 20141212
  Serious: Yes (Life-Threatening)
  Sender: FDA-Public Use
  Company Number: GR-GLAXOSMITHKLINE-B0979681A

PATIENT
  Age: 59 Year
  Sex: Female

DRUGS (1)
  1. SERETIDE [Suspect]
     Indication: RESPIRATORY TRACT INFECTION
     Dosage: 250MCG PER DAY
     Route: 065

REACTIONS (1)
  - Myocardial infarction [Recovered/Resolved]
